FAERS Safety Report 10255342 (Version 2)
Quarter: 2014Q3

REPORT INFORMATION
  Report Type: Spontaneous
  Country: US (occurrence: US)
  Receive Date: 20140624
  Receipt Date: 20140808
  Transmission Date: 20150326
  Serious: No
  Sender: FDA-Public Use
  Company Number: US-PFIZER INC-2014169263

PATIENT
  Age: 83 Year
  Sex: Male
  Weight: 90.7 kg

DRUGS (1)
  1. TOVIAZ [Suspect]
     Active Substance: FESOTERODINE FUMARATE
     Indication: POLLAKIURIA
     Dosage: 4 MG, DAILY
     Route: 048
     Dates: start: 2014, end: 201406

REACTIONS (4)
  - Somnolence [Recovered/Resolved]
  - Poor quality sleep [Recovered/Resolved]
  - Fatigue [Recovered/Resolved]
  - Nocturia [Recovered/Resolved]

NARRATIVE: CASE EVENT DATE: 2014
